FAERS Safety Report 7643493-9 (Version None)
Quarter: 2011Q3

REPORT INFORMATION
  Report Type: 
  Country: None (occurrence: None)
  Receive Date: 20110729
  Receipt Date: 20091119
  Transmission Date: 20111222
  Serious: Yes (Other)
  Sender: FDA-Public Use
  Company Number: US-BAYER-2011-005886

PATIENT
  Age: 77 Year
  Sex: Male
  Weight: 99.773 kg

DRUGS (13)
  1. TRASYLOL [Suspect]
     Indication: CORONARY ARTERY BYPASS
     Dosage: 1 ML, ONCE, TEST DOSE
     Route: 042
     Dates: start: 20030327, end: 20030327
  2. TRASYLOL [Suspect]
     Dosage: 200 ML, ONCE, LOADING DOSE
     Route: 042
     Dates: start: 20030327, end: 20030327
  3. AMIKACIN [Concomitant]
     Dosage: 2 G, UNK
     Route: 042
     Dates: start: 20030327, end: 20030327
  4. RED BLOOD CELLS [Concomitant]
     Dosage: 5 U, ONCE
     Route: 042
     Dates: start: 20030327
  5. FRESH FROZEN PLASMA [Concomitant]
     Dosage: 6 U, ONCE
     Route: 042
     Dates: start: 20030327
  6. ACETYLSALICYLIC ACID SRT [Concomitant]
     Dosage: 325 MG, UNK
     Route: 048
  7. PROTAMINE [Concomitant]
     Dosage: UNK
     Route: 042
     Dates: start: 20030327, end: 20030327
  8. TRASYLOL [Suspect]
     Indication: ATRIAL SEPTAL DEFECT REPAIR
     Dosage: 20 ML, ONCE, PUMP PRIME
     Dates: start: 20030327, end: 20030327
  9. HEPARIN [Concomitant]
     Dosage: UNK
     Route: 042
     Dates: start: 20030327, end: 20030327
  10. VANCOMYCIN [Concomitant]
     Dosage: UNK
     Route: 042
     Dates: start: 20030327, end: 20030327
  11. TRASYLOL [Suspect]
     Dosage: 50 ML/HR ONCE INFUSION
     Route: 042
     Dates: start: 20030327, end: 20030327
  12. ANCEF [Concomitant]
     Dosage: UNK
     Route: 042
     Dates: start: 20030327, end: 20030327
  13. LEVAQUIN [Concomitant]
     Indication: PNEUMONIA
     Route: 042

REACTIONS (9)
  - PAIN [None]
  - ANXIETY [None]
  - CEREBROVASCULAR ACCIDENT [None]
  - EMOTIONAL DISTRESS [None]
  - FEAR [None]
  - ANHEDONIA [None]
  - STRESS [None]
  - INJURY [None]
  - UNEVALUABLE EVENT [None]
